FAERS Safety Report 4370867-4 (Version None)
Quarter: 2004Q2

REPORT INFORMATION
  Report Type: 
  Country: None (occurrence: None)
  Receive Date: 20040601
  Receipt Date: 20040518
  Transmission Date: 20050107
  Serious: Yes (Death)
  Sender: FDA-Public Use
  Company Number: 02100-USA-04-0188

PATIENT

DRUGS (2)
  1. PLETAL [Suspect]
     Indication: THROMBOSIS PROPHYLAXIS
     Dosage: 200 MG DAILY ORAL
     Route: 048
  2. ASPIRIN [Suspect]
     Indication: THROMBOSIS PROPHYLAXIS
     Dosage: 200 MG DAILY ORAL

REACTIONS (6)
  - ACUTE MYOCARDIAL INFARCTION [None]
  - CHRONIC OBSTRUCTIVE AIRWAYS DISEASE [None]
  - DEVICE FAILURE [None]
  - POST PROCEDURAL COMPLICATION [None]
  - STENT OCCLUSION [None]
  - VENTRICULAR DYSFUNCTION [None]
